FAERS Safety Report 14541521 (Version 1)
Quarter: 2018Q1

REPORT INFORMATION
  Report Type: Spontaneous
  Country: GB (occurrence: GB)
  Receive Date: 20180216
  Receipt Date: 20180216
  Transmission Date: 20180509
  Serious: Yes (Hospitalization)
  Sender: FDA-Public Use
  Company Number: GB-OTSUKA-DJ20094813

PATIENT
  Age: 18 Year
  Sex: Female

DRUGS (6)
  1. ABILIFY [Suspect]
     Active Substance: ARIPIPRAZOLE
     Indication: LEARNING DISORDER
     Dosage: 7.5 MG, UNK
     Route: 065
     Dates: start: 20091012
  2. ABILIFY [Suspect]
     Active Substance: ARIPIPRAZOLE
     Indication: EPILEPSY
     Dosage: 5 MG, UNK
     Route: 065
  3. ABILIFY [Suspect]
     Active Substance: ARIPIPRAZOLE
     Indication: SUBSTANCE-INDUCED PSYCHOTIC DISORDER
  4. CLONAZEPAM. [Suspect]
     Active Substance: CLONAZEPAM
     Indication: PRODUCT USED FOR UNKNOWN INDICATION
     Dosage: .5 MG, BID
     Route: 065
  5. ABILIFY [Suspect]
     Active Substance: ARIPIPRAZOLE
     Indication: LEARNING DISORDER
     Dosage: 10 MG, UNK
     Route: 065
  6. TOPAMAX [Concomitant]
     Active Substance: TOPIRAMATE
     Indication: PRODUCT USED FOR UNKNOWN INDICATION
     Dosage: UNK
     Route: 065

REACTIONS (4)
  - Dysstasia [Not Recovered/Not Resolved]
  - Hypotonia [Not Recovered/Not Resolved]
  - Sedation [Not Recovered/Not Resolved]
  - Tremor [Not Recovered/Not Resolved]
